FAERS Safety Report 23098095 (Version 3)
Quarter: 2024Q1

REPORT INFORMATION
  Report Type: Spontaneous
  Country: GB (occurrence: GB)
  Receive Date: 20231023
  Receipt Date: 20240118
  Transmission Date: 20240410
  Serious: Yes (Other)
  Sender: FDA-Public Use
  Company Number: GB-002147023-NVSC2023GB189592

PATIENT
  Sex: Female
  Weight: 81 kg

DRUGS (5)
  1. CRIZANLIZUMAB [Suspect]
     Active Substance: CRIZANLIZUMAB
     Indication: Product used for unknown indication
     Dosage: 300 MG
     Route: 065
  2. CRIZANLIZUMAB [Suspect]
     Active Substance: CRIZANLIZUMAB
     Dosage: 380 MG
     Route: 065
  3. FOLIC ACID [Concomitant]
     Active Substance: FOLIC ACID
     Indication: Product used for unknown indication
     Dosage: 5 MG
     Route: 065
  4. PENICILLIN V [Concomitant]
     Active Substance: PENICILLIN V
     Indication: Product used for unknown indication
     Dosage: 250 MG, BID
     Route: 065
  5. HYDROXYUREA [Concomitant]
     Active Substance: HYDROXYUREA
     Indication: Product used for unknown indication
     Dosage: 2 G, QD
     Route: 065

REACTIONS (5)
  - Acute chest syndrome [Unknown]
  - Vision blurred [Unknown]
  - Visual impairment [Recovered/Resolved]
  - Fatigue [Unknown]
  - Sickle cell anaemia [Unknown]

NARRATIVE: CASE EVENT DATE: 20230717
